FAERS Safety Report 9709450 (Version 1)
Quarter: 2013Q4

REPORT INFORMATION
  Report Type: Report from Study
  Country: US (occurrence: US)
  Receive Date: 20131126
  Receipt Date: 20131126
  Transmission Date: 20140711
  Serious: Yes (Other)
  Sender: FDA-Public Use
  Company Number: US-ROCHE-1305416

PATIENT
  Age: 78 Year
  Sex: Female

DRUGS (7)
  1. AVASTIN [Suspect]
     Indication: RETINAL VEIN OCCLUSION
     Dosage: ^0.5 CC^
     Route: 050
     Dates: start: 20130906
  2. ISTALOL [Concomitant]
  3. BYETTA [Concomitant]
  4. GLIMEPIRIDE [Concomitant]
  5. ZOCOR [Concomitant]
  6. METFORMIN [Concomitant]
  7. COZAAR [Concomitant]

REACTIONS (4)
  - Macular oedema [Unknown]
  - Retinal vascular disorder [Unknown]
  - Retinal haemorrhage [Unknown]
  - Macular scar [Unknown]
